FAERS Safety Report 20063220 (Version 1)
Quarter: 2021Q4

REPORT INFORMATION
  Report Type: Spontaneous
  Country: JP (occurrence: JP)
  Receive Date: 20211112
  Receipt Date: 20211112
  Transmission Date: 20220303
  Serious: Yes (Other)
  Sender: FDA-Public Use
  Company Number: JP-BAYER-2021A245987

PATIENT
  Age: 46 Year
  Sex: Female

DRUGS (2)
  1. MIRENA [Suspect]
     Active Substance: LEVONORGESTREL
     Indication: Heavy menstrual bleeding
     Dosage: 20?G/DAY
     Route: 015
     Dates: start: 2020
  2. MIRENA [Suspect]
     Active Substance: LEVONORGESTREL
     Indication: Dysmenorrhoea

REACTIONS (2)
  - Acute abdomen [None]
  - Endometriosis [None]
